FAERS Safety Report 25140863 (Version 1)
Quarter: 2025Q1

REPORT INFORMATION
  Report Type: Report from Study
  Country: US (occurrence: US)
  Receive Date: 20250331
  Receipt Date: 20250331
  Transmission Date: 20250408
  Serious: Yes (Other)
  Sender: AMNEAL
  Company Number: US-AMNEAL PHARMACEUTICALS-2025-AMRX-01099

PATIENT
  Sex: Male
  Weight: 84.807 kg

DRUGS (9)
  1. CARBIDOPA\LEVODOPA [Suspect]
     Active Substance: CARBIDOPA\LEVODOPA
     Indication: Parkinson^s disease
     Route: 048
  2. ONGENTYS [Suspect]
     Active Substance: OPICAPONE
     Indication: Parkinson^s disease
     Dosage: 1 CAPSULES, 1X/DAY
     Route: 048
  3. EPINEPHRINE [Concomitant]
     Active Substance: EPINEPHRINE
     Indication: Anaphylactic reaction
     Route: 030
  4. INBRIJA [Concomitant]
     Active Substance: LEVODOPA
     Indication: Parkinson^s disease
  5. POLYETHYLENE GLYCOL 3350 [Concomitant]
     Active Substance: POLYETHYLENE GLYCOL 3350
     Indication: Product used for unknown indication
     Route: 065
  6. PRAMIPEXOLE [Concomitant]
     Active Substance: PRAMIPEXOLE
     Indication: Parkinson^s disease
     Dosage: 0.5 TABLETS (0.5 MG), 3X/DAY
     Route: 048
  7. TYLENOL [Concomitant]
     Active Substance: ACETAMINOPHEN
     Indication: Product used for unknown indication
     Route: 065
  8. IBUPROFEN [Concomitant]
     Active Substance: IBUPROFEN
     Indication: Product used for unknown indication
     Route: 065
  9. MIRALAX [Concomitant]
     Active Substance: POLYETHYLENE GLYCOL 3350
     Indication: Product used for unknown indication
     Route: 065

REACTIONS (27)
  - Dystonia [Unknown]
  - Gait disturbance [Unknown]
  - Speech disorder [Unknown]
  - Dysphonia [Unknown]
  - Fall [Unknown]
  - Weight increased [Unknown]
  - Vision blurred [Unknown]
  - Chest pain [Unknown]
  - Dysphagia [Unknown]
  - Constipation [Unknown]
  - Pollakiuria [Unknown]
  - Joint swelling [Unknown]
  - Myalgia [Unknown]
  - Dry skin [Unknown]
  - Depression [Unknown]
  - Dysarthria [Unknown]
  - Muscle rigidity [None]
  - Posture abnormal [None]
  - Scoliosis [Unknown]
  - Reduced facial expression [Unknown]
  - Bradykinesia [None]
  - Loss of personal independence in daily activities [Unknown]
  - On and off phenomenon [Unknown]
  - Weight decreased [Unknown]
  - Anxiety [Unknown]
  - Insomnia [Unknown]
  - Dyskinesia [Unknown]
